FAERS Safety Report 24239607 (Version 4)
Quarter: 2025Q4

REPORT INFORMATION
  Report Type: Report from Study
  Country: US (occurrence: US)
  Receive Date: 20240822
  Receipt Date: 20251006
  Transmission Date: 20260118
  Serious: Yes (Other)
  Sender: AVADEL CNS PHARMACEUTICALS, LLC
  Company Number: US-AVADEL CNS PHARMACEUTICALS, LLC-2024AVA00969

PATIENT
  Sex: Female
  Weight: 61.224 kg

DRUGS (5)
  1. LUMRYZ [Suspect]
     Active Substance: SODIUM OXYBATE
     Indication: Narcolepsy
     Dosage: 4.5 G, ONCE NIGHTLY
     Route: 048
     Dates: start: 20240524, end: 2024
  2. LUMRYZ [Suspect]
     Active Substance: SODIUM OXYBATE
     Indication: Narcolepsy
     Dosage: 6 G
     Route: 048
     Dates: start: 20240608, end: 202509
  3. LUMRYZ [Suspect]
     Active Substance: SODIUM OXYBATE
     Indication: Narcolepsy
     Dosage: 7.5 G, ONCE NIGHTLY
     Route: 048
     Dates: start: 202509
  4. VYVANSE [Concomitant]
     Active Substance: LISDEXAMFETAMINE DIMESYLATE
     Dosage: UNK
  5. VITAMINS [Concomitant]
     Active Substance: VITAMINS
     Dosage: UNK

REACTIONS (12)
  - Pneumonia [Not Recovered/Not Resolved]
  - Affect lability [Recovered/Resolved]
  - Anger [Unknown]
  - Crying [Unknown]
  - Mental disorder [Unknown]
  - Middle insomnia [Not Recovered/Not Resolved]
  - Sleep disorder [Not Recovered/Not Resolved]
  - Tremor [Unknown]
  - Anxiety [Not Recovered/Not Resolved]
  - Decreased appetite [Not Recovered/Not Resolved]
  - Somnolence [Not Recovered/Not Resolved]
  - Nocturia [Unknown]

NARRATIVE: CASE EVENT DATE: 20240101
